FAERS Safety Report 5391283-2 (Version None)
Quarter: 2007Q3

REPORT INFORMATION
  Report Type: 
  Country: None (occurrence: None)
  Receive Date: 20070719
  Receipt Date: 20070709
  Transmission Date: 20080115
  Serious: Yes (Hospitalization, Other)
  Sender: FDA-Public Use
  Company Number: KR-KINGPHARMUSA00001-K200700874

PATIENT

DRUGS (1)
  1. TAPAZOLE [Suspect]
     Dosage: 20 MG, UNK

REACTIONS (11)
  - AGRANULOCYTOSIS [None]
  - HYPERSENSITIVITY [None]
  - IMMUNOGLOBULINS INCREASED [None]
  - INTERLEUKIN LEVEL INCREASED [None]
  - LABORATORY TEST ABNORMAL [None]
  - MEGAKARYOCYTES INCREASED [None]
  - NEUTROPENIA [None]
  - PHARYNGOLARYNGEAL PAIN [None]
  - PLASMACYTOSIS [None]
  - PYREXIA [None]
  - THROMBOCYTHAEMIA [None]
